FAERS Safety Report 6285045-1 (Version None)
Quarter: 2009Q3

REPORT INFORMATION
  Report Type: 
  Country: None (occurrence: None)
  Receive Date: 20090727
  Receipt Date: 20090717
  Transmission Date: 20100115
  Serious: Yes (Hospitalization)
  Sender: FDA-Public Use
  Company Number: FR-AMGEN-UK347158

PATIENT
  Sex: Female

DRUGS (3)
  1. ROMIPLOSTIM [Suspect]
     Indication: DRUG USE FOR UNKNOWN INDICATION
     Route: 065
  2. CORTICOSTEROIDS [Concomitant]
     Route: 042
  3. IMMUNOGLOBULINS [Concomitant]
     Route: 042

REACTIONS (1)
  - DRUG INEFFECTIVE [None]
